FAERS Safety Report 15597040 (Version 1)
Quarter: 2018Q4

REPORT INFORMATION
  Report Type: Spontaneous
  Country: RO (occurrence: RO)
  Receive Date: 20181108
  Receipt Date: 20181108
  Transmission Date: 20190205
  Serious: Yes (Other)
  Sender: FDA-Public Use
  Company Number: RO-BAXTER-2018BAX022803

PATIENT
  Age: 53 Year
  Sex: Female

DRUGS (13)
  1. CYCLOSPORINE. [Suspect]
     Active Substance: CYCLOSPORINE
     Indication: NECROTISING SCLERITIS
  2. ENDOXAN 50 MG DRAJEURI [Suspect]
     Active Substance: CYCLOPHOSPHAMIDE
     Indication: NECROTISING SCLERITIS
     Dosage: UNK UNK, QMO?UNIT DOSE 1(UNIT NOT REPORTED)
     Route: 048
  3. AZATHIOPRINE. [Concomitant]
     Active Substance: AZATHIOPRINE
     Indication: NECROTISING SCLERITIS
  4. CYCLOSPORINE. [Suspect]
     Active Substance: CYCLOSPORINE
     Indication: POLYCHONDRITIS
     Route: 065
  5. METHYLPREDNISOLONE. [Suspect]
     Active Substance: METHYLPREDNISOLONE
     Indication: POLYCHONDRITIS
     Dosage: PULSES
     Route: 065
  6. LEFLUNOMIDE. [Suspect]
     Active Substance: LEFLUNOMIDE
     Indication: ARTHRITIS
     Dosage: 10 MG, QD
     Route: 065
  7. INFLIXIMAB RECOMBINANT [Suspect]
     Active Substance: INFLIXIMAB
     Indication: ARTHRITIS
     Dosage: INFUSION
     Route: 065
  8. LEFLUNOMIDE. [Concomitant]
     Active Substance: LEFLUNOMIDE
     Indication: PRODUCT USED FOR UNKNOWN INDICATION
     Route: 065
  9. INFLIXIMAB RECOMBINANT [Suspect]
     Active Substance: INFLIXIMAB
     Indication: IMMUNODEFICIENCY COMMON VARIABLE
     Route: 042
  10. AZATHIOPRINE. [Concomitant]
     Active Substance: AZATHIOPRINE
     Indication: POLYCHONDRITIS
     Route: 065
  11. ENDOXAN 50 MG DRAJEURI [Suspect]
     Active Substance: CYCLOPHOSPHAMIDE
     Indication: POLYCHONDRITIS
     Dosage: UNK
     Route: 048
  12. METHYLPREDNISOLONE. [Suspect]
     Active Substance: METHYLPREDNISOLONE
     Indication: NECROTISING SCLERITIS
     Route: 065
  13. LEFLUNOMIDE. [Suspect]
     Active Substance: LEFLUNOMIDE
     Route: 065

REACTIONS (6)
  - Renal failure [Unknown]
  - Off label use [Unknown]
  - Hypertension [Unknown]
  - Product use in unapproved indication [Unknown]
  - Escherichia sepsis [Unknown]
  - Diarrhoea [Unknown]
